FAERS Safety Report 6642158-X (Version None)
Quarter: 2010Q1

REPORT INFORMATION
  Report Type: 
  Country: None (occurrence: None)
  Receive Date: 20100319
  Receipt Date: 20100308
  Transmission Date: 20100710
  Serious: Yes (Hospitalization)
  Sender: FDA-Public Use
  Company Number: KR-BAXTER-2010BH006430

PATIENT
  Age: 8 Year
  Sex: Male
  Weight: 44 kg

DRUGS (4)
  1. ADVATE [Suspect]
     Indication: HAEMOPHILIC ARTHROPATHY
     Route: 042
     Dates: start: 20100203, end: 20100302
  2. RECOMBINATE [Concomitant]
     Dates: end: 20100303
  3. HUMAN FACTOR VIII [Concomitant]
     Dates: end: 20100126
  4. HUMAN FACTOR VIII [Concomitant]

REACTIONS (4)
  - ARTHRALGIA [None]
  - DRUG INEFFECTIVE [None]
  - JOINT RANGE OF MOTION DECREASED [None]
  - JOINT SWELLING [None]
